FAERS Safety Report 17107489 (Version 1)
Quarter: 2019Q4

REPORT INFORMATION
  Report Type: Spontaneous
  Country: US (occurrence: US)
  Receive Date: 20191204
  Receipt Date: 20191204
  Transmission Date: 20200122
  Serious: Yes (Other)
  Sender: FDA-Public Use
  Company Number: US-LUPIN PHARMACEUTICALS INC.-2019-07543

PATIENT
  Sex: Female
  Weight: 45.35 kg

DRUGS (1)
  1. LISINOPRIL TABLETS USP, 5MG [Suspect]
     Active Substance: LISINOPRIL
     Indication: HYPERTENSION
     Dosage: 5 MILLIGRAM, QD
     Route: 048
     Dates: start: 20191021, end: 20191024

REACTIONS (5)
  - Pain in extremity [Recovered/Resolved]
  - Depression [Recovered/Resolved]
  - Blood pressure increased [Recovering/Resolving]
  - Muscle spasms [Recovered/Resolved]
  - Tremor [Recovered/Resolved]

NARRATIVE: CASE EVENT DATE: 20191021
